FAERS Safety Report 17893729 (Version 1)
Quarter: 2020Q2

REPORT INFORMATION
  Report Type: Other
  Country: US (occurrence: US)
  Receive Date: 20200615
  Receipt Date: 20200615
  Transmission Date: 20200714
  Serious: Yes (Hospitalization)
  Sender: FDA-Public Use
  Company Number: US-NUVO PHARMACEUTICALS INC-2085805

PATIENT
  Age: 24 Month
  Sex: Male

DRUGS (1)
  1. PHENTERMINE HYDROCHLORIDE. [Suspect]
     Active Substance: PHENTERMINE HYDROCHLORIDE
     Indication: PRODUCT USED FOR UNKNOWN INDICATION
     Route: 048

REACTIONS (7)
  - Haematemesis [Unknown]
  - Hallucination [Unknown]
  - Tachycardia [Unknown]
  - Ataxia [Unknown]
  - Hypertension [Unknown]
  - Agitation [Unknown]
  - Product use issue [Unknown]
